FAERS Safety Report 8560898-2 (Version None)
Quarter: 2012Q3

REPORT INFORMATION
  Report Type: 
  Country: None (occurrence: None)
  Receive Date: 20120802
  Receipt Date: 20120726
  Transmission Date: 20120928
  Serious: Yes (Other)
  Sender: FDA-Public Use
  Company Number: BE-BRISTOL-MYERS SQUIBB COMPANY-16654121

PATIENT
  Age: 45 Year
  Sex: Female

DRUGS (5)
  1. SPRYCEL [Suspect]
     Indication: ACUTE LYMPHOCYTIC LEUKAEMIA
     Dosage: APPROX. 15 DAYS AGO 100MG:3DEC11-08DEC11 140MG:9DEC11-19JAN12 100MG:23JAN-8FEB12 70MG:9-18FEB12
     Dates: start: 20111203, end: 20120218
  2. OMEPRAZOLE [Suspect]
     Indication: HYPERCHLORHYDRIA
     Dates: start: 20111101, end: 20120222
  3. ALPRAZOLAM [Suspect]
     Indication: ANXIOLYTIC THERAPY
     Dates: start: 20111202, end: 20120222
  4. CLARITHROMYCIN [Suspect]
     Indication: INFECTION
     Dates: start: 20110218, end: 20120222
  5. VORICONAZOLE [Suspect]
     Indication: FUNGAL INFECTION
     Dates: start: 20111205, end: 20120221

REACTIONS (4)
  - PERICARDIAL EFFUSION [None]
  - PLEURAL FIBROSIS [None]
  - PLEURAL EFFUSION [None]
  - NEOPLASM MALIGNANT [None]
